FAERS Safety Report 6939943-3 (Version None)
Quarter: 2010Q3

REPORT INFORMATION
  Report Type: 
  Country: None (occurrence: None)
  Receive Date: 20100825
  Receipt Date: 20100812
  Transmission Date: 20110219
  Serious: Yes (Death, Hospitalization, Other)
  Sender: FDA-Public Use
  Company Number: DE-PFIZER INC-2010078158

PATIENT
  Age: 83 Year
  Sex: Male

DRUGS (12)
  1. REVATIO [Suspect]
     Indication: PULMONARY HYPERTENSION
     Dosage: UNK
     Route: 048
     Dates: end: 20100401
  2. MARCUMAR [Suspect]
  3. ISOPTIN [Concomitant]
     Dosage: THRICE DAILY 1/2 DF (1 DF= 240)
  4. PREDNISOLON [Concomitant]
     Dosage: 10 MG, 1X/DAY
  5. OMEPRAZOLE [Concomitant]
     Dosage: UNK
  6. XIPAMIDE [Concomitant]
     Dosage: 1/2 DF (1 DF = 10)/DAY
  7. SYMBICORT [Concomitant]
     Dosage: 1 PUFF/DAY
     Route: 055
  8. METFORMIN [Concomitant]
  9. TAMSULOSIN [Concomitant]
     Dosage: 0.4 UNK, 1X/DAY
  10. REKAWAN [Concomitant]
     Dosage: 3X2 DF/DAY
  11. GLUCOSE [Concomitant]
     Dosage: 5 %/24 HOURS
  12. CLEXANE [Concomitant]
     Dosage: 0.5 ML, 2X/DAY
     Route: 058

REACTIONS (8)
  - ABDOMINAL PAIN [None]
  - BLADDER DILATATION [None]
  - DYSPNOEA EXERTIONAL [None]
  - EPISTAXIS [None]
  - FAECALOMA [None]
  - MALAISE [None]
  - PULMONARY EMBOLISM [None]
  - SUDDEN CARDIAC DEATH [None]
